FAERS Safety Report 11636384 (Version 2)
Quarter: 2016Q1

REPORT INFORMATION
  Report Type: Report from Study
  Country: JP (occurrence: JP)
  Receive Date: 20151016
  Receipt Date: 20160301
  Transmission Date: 20160525
  Serious: Yes (Death, Hospitalization)
  Sender: FDA-Public Use
  Company Number: JP-SA-2015SA162447

PATIENT
  Age: 66 Year
  Sex: Female
  Weight: 50.9 kg

DRUGS (19)
  1. PROGRAF [Suspect]
     Active Substance: TACROLIMUS\TACROLIMUS ANHYDROUS
     Indication: IMMUNOSUPPRESSION
     Dosage: DOSE: 0.1-0.4 MG
     Route: 042
     Dates: start: 20150901, end: 20150928
  2. THYMOGLOBULINE [Suspect]
     Active Substance: LAPINE T-LYMPHOCYTE IMMUNE GLOBULIN
     Indication: LIVER TRANSPLANT REJECTION
     Route: 042
     Dates: start: 20150920, end: 20150923
  3. MYCOPHENOLATE MOFETIL. [Concomitant]
     Active Substance: MYCOPHENOLATE MOFETIL
     Indication: IMMUNOSUPPRESSANT DRUG THERAPY
     Route: 048
     Dates: start: 20150908, end: 20150914
  4. MEROPEN [Concomitant]
     Active Substance: MEROPENEM
     Indication: LIVER TRANSPLANT REJECTION
     Dates: start: 20150926, end: 20150928
  5. ACELIO [Concomitant]
     Active Substance: ACETAMINOPHEN
     Indication: PREMEDICATION
     Dates: start: 20150909, end: 20150923
  6. ZYVOX [Suspect]
     Active Substance: LINEZOLID
     Indication: LIVER TRANSPLANT REJECTION
     Route: 042
     Dates: start: 20150917, end: 20150925
  7. ZOSYN [Concomitant]
     Active Substance: PIPERACILLIN SODIUM\TAZOBACTAM SODIUM
     Indication: LIVER TRANSPLANT REJECTION
     Dates: start: 20150908, end: 20150916
  8. VANCOMYCIN [Concomitant]
     Active Substance: VANCOMYCIN
     Indication: LIVER TRANSPLANT REJECTION
     Dates: start: 20150926, end: 20150928
  9. BOSMIN [Concomitant]
     Active Substance: EPINEPHRINE
     Indication: LIVER TRANSPLANT REJECTION
     Dates: start: 20150926, end: 20150928
  10. ELASPOL [Concomitant]
     Active Substance: SIVELESTAT SODIUM
     Indication: LIVER TRANSPLANT REJECTION
     Dates: start: 20150926, end: 20150928
  11. THYMOGLOBULINE [Suspect]
     Active Substance: LAPINE T-LYMPHOCYTE IMMUNE GLOBULIN
     Indication: LIVER TRANSPLANT REJECTION
     Route: 042
     Dates: start: 20150909, end: 20150915
  12. POLARAMINE [Concomitant]
     Active Substance: DEXCHLORPHENIRAMINE MALEATE
     Indication: PREMEDICATION
     Route: 048
     Dates: start: 20150909, end: 20150923
  13. GLOVENIN [Concomitant]
     Indication: LIVER TRANSPLANT REJECTION
     Dosage: 5 - 20 G/DAY
     Dates: start: 20150909, end: 20150928
  14. REMINARON [Concomitant]
     Active Substance: GABEXATE MESYLATE
     Indication: LIVER TRANSPLANT REJECTION
     Dates: start: 20150926, end: 20150928
  15. ALBUMIN [Concomitant]
     Active Substance: ALBUMIN (HUMAN)
     Indication: LIVER TRANSPLANT REJECTION
     Dates: start: 20150909, end: 20150928
  16. PITRESSIN [Concomitant]
     Active Substance: VASOPRESSIN
     Indication: LIVER TRANSPLANT REJECTION
     Dosage: DOSE:20 UNIT(S)
     Dates: start: 20150926, end: 20150928
  17. NOREPINEPHRINE [Concomitant]
     Active Substance: NOREPINEPHRINE\NOREPINEPHRINE BITARTRATE
     Indication: LIVER TRANSPLANT REJECTION
     Dates: start: 20150926, end: 20150928
  18. SAXIZON [Concomitant]
     Active Substance: HYDROCORTISONE SODIUM SUCCINATE
     Indication: PREMEDICATION
     Dates: start: 20150909, end: 20150923
  19. SOLU-MEDROL [Concomitant]
     Active Substance: METHYLPREDNISOLONE SODIUM SUCCINATE
     Indication: IMMUNOSUPPRESSANT DRUG THERAPY
     Dosage: 40 - 500 MG/DAY
     Dates: start: 20150901, end: 20150928

REACTIONS (2)
  - Pancytopenia [Unknown]
  - Sepsis [Fatal]

NARRATIVE: CASE EVENT DATE: 20150922
